FAERS Safety Report 5138413-5 (Version None)
Quarter: 2006Q4

REPORT INFORMATION
  Report Type: 
  Country: None (occurrence: None)
  Receive Date: 20061030
  Receipt Date: 20060220
  Transmission Date: 20070319
  Serious: No
  Sender: FDA-Public Use
  Company Number: US-GLAXOSMITHKLINE-A0594414A

PATIENT
  Age: 74 Year
  Sex: Male

DRUGS (7)
  1. ADVAIR DISKUS 250/50 [Suspect]
     Indication: ASTHMA
     Dosage: 1PUFF TWICE PER DAY
     Route: 055
  2. FLOVENT [Suspect]
     Indication: ASTHMA
     Dosage: 880MCG FOUR TIMES PER DAY
     Route: 055
  3. SPIRONOLACTONE [Concomitant]
  4. ZANTAC [Concomitant]
  5. THEO-DUR [Concomitant]
  6. ALLEGRA [Concomitant]
  7. ASTELIN [Concomitant]

REACTIONS (1)
  - PRESCRIBED OVERDOSE [None]
